FAERS Safety Report 24888665 (Version 4)
Quarter: 2025Q2

REPORT INFORMATION
  Report Type: Spontaneous
  Country: None (occurrence: CA)
  Receive Date: 20250127
  Receipt Date: 20250625
  Transmission Date: 20250716
  Serious: Yes (Other)
  Sender: MYLAN
  Company Number: CA-MYLANLABS-2025M1006239

PATIENT
  Sex: Female

DRUGS (9)
  1. REVATIO [Interacting]
     Active Substance: SILDENAFIL CITRATE
     Indication: Pulmonary arterial hypertension
     Dosage: 20 MILLIGRAM, TID (THREE TIMES A DAY)
     Dates: start: 20161205
  2. DOMPERIDONE [Interacting]
     Active Substance: DOMPERIDONE
     Indication: Product used for unknown indication
  3. AZITHROMYCIN [Interacting]
     Active Substance: AZITHROMYCIN
     Indication: Product used for unknown indication
  4. FLOLAN [Concomitant]
     Active Substance: EPOPROSTENOL SODIUM
  5. VITAMIN D [Concomitant]
     Active Substance: VITAMIN D NOS
  6. DIGOXIN [Concomitant]
     Active Substance: DIGOXIN
  7. PREDNISONE [Concomitant]
     Active Substance: PREDNISONE
  8. CALCIUM [Concomitant]
     Active Substance: CALCIUM
  9. OPSUMIT [Concomitant]
     Active Substance: MACITENTAN

REACTIONS (9)
  - Illness [Unknown]
  - Compression fracture [Unknown]
  - Oxygen saturation decreased [Unknown]
  - Cough [Unknown]
  - Wheezing [Unknown]
  - Weight increased [Unknown]
  - Tachycardia [Unknown]
  - Dizziness [Unknown]
  - Drug interaction [Unknown]
